FAERS Safety Report 7023468-3 (Version None)
Quarter: 2010Q3

REPORT INFORMATION
  Report Type: 
  Country: None (occurrence: None)
  Receive Date: 20100929
  Receipt Date: 20100916
  Transmission Date: 20110219
  Serious: Yes (Other)
  Sender: FDA-Public Use
  Company Number: 018009

PATIENT
  Sex: Female
  Weight: 81.7 kg

DRUGS (7)
  1. KEPPRA [Suspect]
     Indication: CONVULSION
     Dosage: 500 MG, TWO AT BED TIME (HS) ORAL
     Route: 048
     Dates: start: 20090806
  2. CITALOPRAM HYDROBROMIDE [Suspect]
     Indication: DEPRESSION
     Dosage: 20 MG 1/2 QD ORAL
     Route: 048
     Dates: start: 20100601
  3. METOPROLOL [Concomitant]
  4. ASPIRIN [Concomitant]
  5. GARLIC /01570501/ [Concomitant]
  6. VITAMIN E /05494901/ [Concomitant]
  7. XANXA [Concomitant]

REACTIONS (5)
  - ABNORMAL DREAMS [None]
  - CONVULSION [None]
  - DEPRESSION [None]
  - HEADACHE [None]
  - SUICIDAL IDEATION [None]
